FAERS Safety Report 25469413 (Version 1)
Quarter: 2025Q2

REPORT INFORMATION
  Report Type: Spontaneous
  Country: DE (occurrence: DE)
  Receive Date: 20250623
  Receipt Date: 20250623
  Transmission Date: 20250716
  Serious: Yes (Other)
  Sender: BRISTOL-MYERS SQUIBB COMPANY
  Company Number: DE-BRISTOL-MYERS SQUIBB COMPANY-2025-085748

PATIENT
  Age: 69 Year
  Sex: Male

DRUGS (13)
  1. NIVOLUMAB [Suspect]
     Active Substance: NIVOLUMAB
     Indication: Metastatic malignant melanoma
     Dates: start: 2024
  2. PEMBROLIZUMAB [Concomitant]
     Active Substance: PEMBROLIZUMAB
     Indication: Metastatic malignant melanoma
     Dates: start: 202106
  3. PEMBROLIZUMAB [Concomitant]
     Active Substance: PEMBROLIZUMAB
     Dates: start: 20240614
  4. PEMBROLIZUMAB [Concomitant]
     Active Substance: PEMBROLIZUMAB
     Dates: start: 20250407
  5. PEMBROLIZUMAB [Concomitant]
     Active Substance: PEMBROLIZUMAB
     Dates: start: 20250519
  6. BRAFTOVI [Concomitant]
     Active Substance: ENCORAFENIB
     Indication: Targeted cancer therapy
     Dates: start: 202302
  7. BRAFTOVI [Concomitant]
     Active Substance: ENCORAFENIB
     Dates: start: 20240614
  8. BRAFTOVI [Concomitant]
     Active Substance: ENCORAFENIB
     Dates: start: 20250407
  9. BRAFTOVI [Concomitant]
     Active Substance: ENCORAFENIB
     Dates: start: 20250519
  10. MEKTOVI [Concomitant]
     Active Substance: BINIMETINIB
     Indication: Targeted cancer therapy
     Dates: start: 202302
  11. MEKTOVI [Concomitant]
     Active Substance: BINIMETINIB
     Dates: start: 20240614
  12. MEKTOVI [Concomitant]
     Active Substance: BINIMETINIB
     Dates: start: 20250407
  13. MEKTOVI [Concomitant]
     Active Substance: BINIMETINIB
     Dates: start: 20250519

REACTIONS (3)
  - Deep vein thrombosis [Unknown]
  - Pulmonary embolism [Unknown]
  - Malignant neoplasm progression [Unknown]

NARRATIVE: CASE EVENT DATE: 20240628
